FAERS Safety Report 9805954 (Version 1)
Quarter: 2014Q1

REPORT INFORMATION
  Report Type: Spontaneous
  Country: IT (occurrence: None)
  Receive Date: 20140107
  Receipt Date: 20140107
  Transmission Date: 20141002
  Serious: Yes (Hospitalization)
  Sender: FDA-Public Use
  Company Number: AUR-APL-2014-00099

PATIENT
  Sex: Female

DRUGS (1)
  1. LEVOFLOXACIN (LEVOFLOXACIN) [Suspect]

REACTIONS (1)
  - Epilepsy [None]
